FAERS Safety Report 13717694 (Version 1)
Quarter: 2017Q3

REPORT INFORMATION
  Report Type: Spontaneous
  Country: US (occurrence: US)
  Receive Date: 20170705
  Receipt Date: 20170705
  Transmission Date: 20171127
  Serious: Yes (Other)
  Sender: FDA-Public Use
  Company Number: None

PATIENT
  Age: 68 Year
  Sex: Female
  Weight: 65.83 kg

DRUGS (11)
  1. OXYCODON [Concomitant]
     Active Substance: OXYCODONE
  2. PROPOFOL. [Suspect]
     Active Substance: PROPOFOL
     Indication: SEDATION
     Dates: start: 20170628, end: 20170628
  3. PRAVASTATIN. [Concomitant]
     Active Substance: PRAVASTATIN
  4. EZETIMIBE. [Concomitant]
     Active Substance: EZETIMIBE
  5. AMLODIPINE [Concomitant]
     Active Substance: AMLODIPINE BESYLATE
  6. HYDROCHOROTHIAZIDE-TRIAMTERENE [Concomitant]
  7. MULTIVITAMINS WITH MINERALS (CALCIUM WITH VITAMIN D AND MAGNESIUM) [Concomitant]
  8. UBIQUINONE [Concomitant]
     Active Substance: UBIDECARENONE
  9. BIOTIN [Concomitant]
     Active Substance: BIOTIN
  10. ASPIRIN. [Concomitant]
     Active Substance: ASPIRIN
  11. CHONDROITIN/GLUCOSAMINE/METHYLSULFONYLMETHANE [Concomitant]

REACTIONS (5)
  - Fatigue [None]
  - Dizziness [None]
  - Seizure [None]
  - Loss of consciousness [None]
  - Hyperhidrosis [None]

NARRATIVE: CASE EVENT DATE: 20170628
